FAERS Safety Report 22152885 (Version 1)
Quarter: 2023Q1

REPORT INFORMATION
  Report Type: Spontaneous
  Country: None (occurrence: GB)
  Receive Date: 20230329
  Receipt Date: 20230329
  Transmission Date: 20230417
  Serious: Yes (Other)
  Sender: FDA-Public Use
  Company Number: GB-Breckenridge Pharmaceutical, Inc.-2139680

PATIENT
  Age: 27 Year
  Sex: Female

DRUGS (1)
  1. OMEPRAZOLE [Suspect]
     Active Substance: OMEPRAZOLE

REACTIONS (2)
  - Oropharyngeal pain [Not Recovered/Not Resolved]
  - Syncope [Not Recovered/Not Resolved]
